FAERS Safety Report 13212913 (Version 2)
Quarter: 2017Q1

REPORT INFORMATION
  Report Type: Report from Study
  Country: US (occurrence: US)
  Receive Date: 20170210
  Receipt Date: 20170310
  Transmission Date: 20170428
  Serious: No
  Sender: FDA-Public Use
  Company Number: GXBR2017US000624

PATIENT
  Age: 13 Year
  Sex: Male

DRUGS (1)
  1. OMNITROPE [Suspect]
     Active Substance: SOMATROPIN
     Indication: HYPOPITUITARISM
     Dosage: 2 MG, QD
     Route: 058
     Dates: start: 201608

REACTIONS (1)
  - Growth retardation [Not Recovered/Not Resolved]

NARRATIVE: CASE EVENT DATE: 201608
